FAERS Safety Report 4609405-7 (Version None)
Quarter: 2005Q2

REPORT INFORMATION
  Report Type: 
  Country: None (occurrence: None)
  Receive Date: 20050225
  Receipt Date: 20041203
  Transmission Date: 20051028
  Serious: No
  Sender: FDA-Public Use
  Company Number: 2005US002338

PATIENT
  Age: 66 Year
  Sex: Female
  Weight: 62.6 kg

DRUGS (7)
  1. ALOXI [Suspect]
     Indication: PROPHYLAXIS OF NAUSEA AND VOMITING
     Dosage: 0.25 MG, SINGLE, INTRAVENOUS
     Route: 042
     Dates: start: 20041020, end: 20041020
  2. ALOXI [Suspect]
     Indication: PROPHYLAXIS OF NAUSEA AND VOMITING
     Dosage: 0.25 MG, SINGLE, INTRAVENOUS
     Route: 042
     Dates: start: 20041103, end: 20041103
  3. ALOXI [Suspect]
     Indication: PROPHYLAXIS OF NAUSEA AND VOMITING
     Dosage: 0.25 MG, SINGLE, INTRAVENOUS
     Route: 042
     Dates: start: 20041117, end: 20041117
  4. ADRIAMYCIN PFS [Suspect]
     Indication: CHEMOTHERAPY
     Dosage: 100 MG,
     Dates: start: 20041020
  5. CYTOXAN [Concomitant]
  6. DECADRON [Concomitant]
  7. SODIUM CHLORIDE [Concomitant]

REACTIONS (2)
  - PHLEBITIS [None]
  - SWELLING [None]
